FAERS Safety Report 10064342 (Version 1)
Quarter: 2014Q2

REPORT INFORMATION
  Report Type: Spontaneous
  Country: US (occurrence: None)
  Receive Date: 20140407
  Receipt Date: 20140407
  Transmission Date: 20141212
  Serious: Yes (Other)
  Sender: FDA-Public Use
  Company Number: None

PATIENT
  Age: 47 Year
  Sex: Female
  Weight: 63.96 kg

DRUGS (1)
  1. LEVOFLOXACIN [Suspect]
     Indication: SINUSITIS
     Dosage: TAKEN BY MOUTH
     Route: 048
     Dates: start: 20140401, end: 20140402

REACTIONS (5)
  - Renal pain [None]
  - Insomnia [None]
  - Bladder pain [None]
  - Musculoskeletal pain [None]
  - Pain in extremity [None]
